FAERS Safety Report 7408000 (Version 4)
Quarter: 2014Q1

REPORT INFORMATION
  Report Type: Spontaneous
  Country: US (occurrence: US)
  Receive Date: 20100603
  Receipt Date: 20140204
  Transmission Date: 20141002
  Serious: No
  Sender: FDA-Public Use
  Company Number: US-JNJFOC-20100509985

PATIENT
  Age: 68 Year
  Sex: Female
  Weight: 68.95 kg

DRUGS (12)
  1. SANDOZ FENTANYL TRANSDERMAL SYSTEM [Suspect]
     Indication: FIBROMYALGIA
     Route: 062
     Dates: start: 20100520, end: 20100620
  2. SANDOZ FENTANYL TRANSDERMAL SYSTEM [Suspect]
     Indication: PAIN
     Route: 062
     Dates: start: 20100520, end: 20100620
  3. SANDOZ FENTANYL TRANSDERMAL SYSTEM [Suspect]
     Indication: FIBROMYALGIA
     Route: 062
     Dates: start: 201006
  4. METOPROLOL TARTRATE [Suspect]
     Indication: HYPERTENSION
     Route: 048
  5. UNKNOWN MEDICATION [Concomitant]
     Indication: HORMONE REPLACEMENT THERAPY
     Route: 048
  6. UNKNOWN MEDICATION [Concomitant]
     Indication: BLOOD PRESSURE
     Route: 048
     Dates: start: 1999
  7. UNKNOWN MEDICATION [Concomitant]
     Indication: ANTICOAGULANT THERAPY
     Route: 048
     Dates: start: 1999
  8. PLAVIX [Concomitant]
     Indication: HYPERTENSION
     Route: 048
  9. ALTACE [Concomitant]
     Indication: HYPERTENSION
     Route: 048
  10. ESTRADIOL [Concomitant]
     Indication: NUTRITIONAL SUPPLEMENTATION
     Route: 065
  11. MULTIPLE VITAMIN [Concomitant]
     Indication: NUTRITIONAL SUPPLEMENTATION
     Route: 065
  12. B50 [Concomitant]
     Indication: NUTRITIONAL SUPPLEMENTATION
     Route: 065

REACTIONS (18)
  - Incorrect drug administration rate [Not Recovered/Not Resolved]
  - Abnormal behaviour [Recovered/Resolved]
  - Fall [Not Recovered/Not Resolved]
  - Feeling abnormal [Not Recovered/Not Resolved]
  - Contusion [Not Recovered/Not Resolved]
  - Gait disturbance [Not Recovered/Not Resolved]
  - Product quality issue [Not Recovered/Not Resolved]
  - Inappropriate schedule of drug administration [Not Recovered/Not Resolved]
  - Overdose [Recovered/Resolved]
  - Pain [Not Recovered/Not Resolved]
  - Pain [Recovered/Resolved]
  - Wrong technique in drug usage process [Not Recovered/Not Resolved]
  - Wrong technique in drug usage process [Not Recovered/Not Resolved]
  - Application site rash [Not Recovered/Not Resolved]
  - Therapeutic response decreased [Not Recovered/Not Resolved]
  - Drug ineffective [Not Recovered/Not Resolved]
  - Hypotension [Not Recovered/Not Resolved]
  - Product quality issue [Unknown]
